FAERS Safety Report 25820916 (Version 1)
Quarter: 2025Q3

REPORT INFORMATION
  Report Type: Report from Study
  Country: US (occurrence: US)
  Receive Date: 20250919
  Receipt Date: 20250919
  Transmission Date: 20251021
  Serious: No
  Sender: SUNOVION
  Company Number: US-SUMITOMO PHARMA SWITZERLAND GMBH-2025SPA001937

PATIENT
  Age: 77 Year
  Sex: Male

DRUGS (9)
  1. ORGOVYX [Suspect]
     Active Substance: RELUGOLIX
     Indication: Prostate cancer
     Dosage: 120 MG, QD
     Route: 048
     Dates: start: 2023
  2. AMLODIPINE [Concomitant]
     Active Substance: AMLODIPINE BESYLATE
  3. BICALUTAMIDE [Concomitant]
     Active Substance: BICALUTAMIDE
  4. CALCITRIOL [Concomitant]
     Active Substance: CALCITRIOL
  5. DUTASTERIDE [Concomitant]
     Active Substance: DUTASTERIDE
  6. METOPROLOL [Concomitant]
     Active Substance: METOPROLOL
  7. VITAMIN D [Concomitant]
     Active Substance: VITAMIN D NOS
  8. XTANDI [Concomitant]
     Active Substance: ENZALUTAMIDE
  9. SODIUM BICARBONATE [Concomitant]
     Active Substance: SODIUM BICARBONATE

REACTIONS (2)
  - Hot flush [Unknown]
  - Incorrect dose administered [Recovered/Resolved]
